FAERS Safety Report 7930180-2 (Version None)
Quarter: 2011Q4

REPORT INFORMATION
  Report Type: 
  Country: None (occurrence: None)
  Receive Date: 20111121
  Receipt Date: 20111024
  Transmission Date: 20120403
  Serious: No
  Sender: FDA-Public Use
  Company Number: US-BAYER-2011-103723

PATIENT
  Sex: Female

DRUGS (1)
  1. MIRENA [Suspect]
     Dosage: 20 MCG/24HR, CONT

REACTIONS (2)
  - ABDOMINAL PAIN [None]
  - PYREXIA [None]
